FAERS Safety Report 6749826-X (Version None)
Quarter: 2010Q2

REPORT INFORMATION
  Report Type: 
  Country: None (occurrence: None)
  Receive Date: 20100601
  Receipt Date: 20100526
  Transmission Date: 20101027
  Serious: Yes (Other)
  Sender: FDA-Public Use
  Company Number: US-MERCK-1005USA01279

PATIENT
  Age: 13 Month
  Sex: Female
  Weight: 11 kg

DRUGS (1)
  1. SINGULAIR [Suspect]
     Indication: HYPERSENSITIVITY
     Route: 048
     Dates: start: 20100506, end: 20100510

REACTIONS (1)
  - FEBRILE CONVULSION [None]
